FAERS Safety Report 7707690-6 (Version None)
Quarter: 2011Q3

REPORT INFORMATION
  Report Type: 
  Country: None (occurrence: None)
  Receive Date: 20110824
  Receipt Date: 20110817
  Transmission Date: 20111222
  Serious: Yes (Other)
  Sender: FDA-Public Use
  Company Number: US-BAYER-201039529NA

PATIENT
  Age: 18 Year
  Sex: Female
  Weight: 68.027 kg

DRUGS (6)
  1. YAZ [Suspect]
     Indication: MENSTRUATION IRREGULAR
     Dosage: UNK UNK, UNK
     Route: 048
     Dates: start: 20070801, end: 20080801
  2. YAZ [Suspect]
     Indication: ORAL CONTRACEPTION
  3. LIBRAX [Concomitant]
     Dosage: UNK
     Dates: start: 20080101, end: 20100101
  4. YAZ [Suspect]
     Indication: PREMENSTRUAL SYNDROME
  5. NEXIUM [Concomitant]
     Dosage: UNK
     Dates: start: 20080101, end: 20100101
  6. TRAMADOL HCL [Concomitant]

REACTIONS (6)
  - ABDOMINAL PAIN UPPER [None]
  - BILIARY DYSKINESIA [None]
  - CHOLECYSTITIS CHRONIC [None]
  - POST CHOLECYSTECTOMY SYNDROME [None]
  - GASTROINTESTINAL DISORDER [None]
  - GALLBLADDER DISORDER [None]
